FAERS Safety Report 6503075-9 (Version None)
Quarter: 2009Q4

REPORT INFORMATION
  Report Type: 
  Country: None (occurrence: None)
  Receive Date: 20091217
  Receipt Date: 20081119
  Transmission Date: 20100525
  Serious: Yes (Death, Other)
  Sender: FDA-Public Use
  Company Number: PHEH2008US11782

PATIENT
  Sex: Male

DRUGS (2)
  1. DIOVAN [Suspect]
     Dosage: UNK
     Dates: start: 20050101
  2. DIOVAN HCT [Suspect]
     Dosage: UNK
     Dates: end: 20050101

REACTIONS (4)
  - BLOOD CHOLESTEROL INCREASED [None]
  - CORONARY ARTERY BYPASS [None]
  - DEATH [None]
  - MALIGNANT MELANOMA [None]
